FAERS Safety Report 16276296 (Version 1)
Quarter: 2019Q2

REPORT INFORMATION
  Report Type: Report from Study
  Country: IT (occurrence: IT)
  Receive Date: 20190505
  Receipt Date: 20190505
  Transmission Date: 20190711
  Serious: Yes (Death)
  Sender: FDA-Public Use
  Company Number: IT-INGENUS PHARMACEUTICALS, LLC-2019INF000023

PATIENT

DRUGS (4)
  1. BEVACIZUMAB. [Suspect]
     Active Substance: BEVACIZUMAB
     Indication: METASTASES TO PERITONEUM
     Dosage: WEEKLY ALTERNATING ON DAYS 1 AND 15
     Route: 065
  2. 5-FLUOROURACIL [Suspect]
     Active Substance: FLUOROURACIL
     Indication: METASTASES TO PERITONEUM
     Dosage: 12 HOURS FOR TWO CONSECUTIVE NIGHTS: FROM 10:00 PM TO 10:00 AM, 1 TIMES A WEEK
     Route: 042
  3. OXALIPLATIN. [Suspect]
     Active Substance: OXALIPLATIN
     Indication: METASTASES TO PERITONEUM
     Dosage: WEEKLY ALTERNATING ON DAYS 8 AND 22
     Route: 065
  4. IRINOTECAN [Suspect]
     Active Substance: IRINOTECAN
     Indication: METASTASES TO PERITONEUM
     Dosage: WEEKLY ALTERNATING ON DAYS 1 AND 15
     Route: 065

REACTIONS (1)
  - Intestinal perforation [Fatal]
